FAERS Safety Report 18244190 (Version 3)
Quarter: 2020Q4

REPORT INFORMATION
  Report Type: Spontaneous
  Country: JP (occurrence: JP)
  Receive Date: 20200908
  Receipt Date: 20201202
  Transmission Date: 20210113
  Serious: Yes (Other)
  Sender: FDA-Public Use
  Company Number: JP-JNJFOC-20200846308

PATIENT
  Age: 74 Year
  Sex: Female
  Weight: 34.8 kg

DRUGS (1)
  1. SIMPONI [Suspect]
     Active Substance: GOLIMUMAB
     Indication: RHEUMATOID ARTHRITIS
     Dosage: GOLIMUMAB (GENETICAL RECOMBINATION):50MG
     Route: 058
     Dates: start: 2018

REACTIONS (1)
  - Meningitis [Unknown]
